FAERS Safety Report 9036467 (Version 1)
Quarter: 2013Q1

REPORT INFORMATION
  Report Type: Spontaneous
  Country: GB (occurrence: None)
  Receive Date: 20130114
  Receipt Date: 20130114
  Transmission Date: 20140127
  Serious: Yes (Hospitalization)
  Sender: FDA-Public Use
  Company Number: DSA_61804_2013

PATIENT
  Age: 52 Year
  Sex: Male

DRUGS (4)
  1. FLUOROURACIL (FLUOROURACIL) [Suspect]
     Indication: COLORECTAL CANCER METASTATIC
     Route: 040
     Dates: start: 20121204, end: 20121204
  2. AFLIBERCEPT (AFLIBERCEPT) SOLUTION FOR INJECTION [Suspect]
     Indication: COLORECTAL CANCER METASTATIC
     Route: 041
     Dates: start: 20121204, end: 20121204
  3. IRINOTECAN (IRINOTECAN) [Suspect]
     Indication: COLORECTAL CANCER METASTATIC
     Route: 041
     Dates: start: 20121204, end: 20121204
  4. LEUCOVORIN /00566701/ (LEUCOVORIN-FOLINIC ACID) [Suspect]
     Indication: COLORECTAL CANCER METASTATIC
     Route: 041
     Dates: start: 20121204, end: 20121204

REACTIONS (5)
  - Pyrexia [None]
  - Cough [None]
  - Neutrophil count decreased [None]
  - White blood cell count decreased [None]
  - C-reactive protein increased [None]
